FAERS Safety Report 24721429 (Version 1)
Quarter: 2024Q4

REPORT INFORMATION
  Report Type: Spontaneous
  Country: JP (occurrence: JP)
  Receive Date: 20241211
  Receipt Date: 20241211
  Transmission Date: 20250114
  Serious: Yes (Hospitalization)
  Sender: NOVAST LABORATORIES LTD
  Company Number: JP-NOVAST LABORATORIES INC.-2024NOV000331

PATIENT
  Age: 51 Year
  Sex: Male

DRUGS (8)
  1. FLUOROURACIL [Suspect]
     Active Substance: FLUOROURACIL
     Indication: Rectal cancer
     Dosage: 400 MILLIGRAM/SQ. METER ON DAY ONE
     Route: 065
  2. FLUOROURACIL [Suspect]
     Active Substance: FLUOROURACIL
     Dosage: 2400 MILLIGRAM/SQ. METER CONTINUOUS IV INFUSION FOR 46 HOURS ON DAYS ONE AND TWO
     Route: 042
  3. IRINOTECAN [Concomitant]
     Active Substance: IRINOTECAN
     Indication: Rectal cancer
     Dosage: 150 MILLIGRAM/SQ. METER ON DAY ONE
     Route: 065
  4. LEUCOVORIN [Concomitant]
     Active Substance: LEUCOVORIN\LEUCOVORIN CALCIUM
     Indication: Rectal cancer
     Dosage: 200 MILLIGRAM/SQ. METER ON DAY ONE
     Route: 065
  5. ZIV-AFLIBERCEPT [Concomitant]
     Active Substance: ZIV-AFLIBERCEPT
     Indication: Rectal cancer
     Dosage: 4 MILLIGRAM/KILOGRAM
     Route: 065
  6. FUROSEMIDE [Concomitant]
     Active Substance: FUROSEMIDE
     Indication: Product used for unknown indication
     Dosage: UNK
     Route: 065
  7. OXYCODONE [Concomitant]
     Active Substance: OXYCODONE
     Indication: Product used for unknown indication
     Dosage: UNK
     Route: 065
  8. NICARDIPINE [Concomitant]
     Active Substance: NICARDIPINE
     Indication: Product used for unknown indication
     Dosage: UNK
     Route: 065

REACTIONS (3)
  - Lactic acidosis [Recovering/Resolving]
  - Acute kidney injury [Recovering/Resolving]
  - Hyperammonaemia [Recovering/Resolving]
